FAERS Safety Report 14376870 (Version 2)
Quarter: 2018Q1

REPORT INFORMATION
  Report Type: Report from Study
  Country: CN (occurrence: CN)
  Receive Date: 20180111
  Receipt Date: 20180126
  Transmission Date: 20180509
  Serious: Yes (Disabling, Other)
  Sender: FDA-Public Use
  Company Number: CN-BAYER-2018-004581

PATIENT
  Age: 65 Year
  Sex: Female

DRUGS (1)
  1. STIVARGA [Suspect]
     Active Substance: REGORAFENIB
     Indication: COLORECTAL CANCER
     Dosage: 160 MG, QD
     Route: 048
     Dates: start: 20171225

REACTIONS (9)
  - Dysphonia [None]
  - Palmar-plantar erythrodysaesthesia syndrome [None]
  - Faeces hard [None]
  - Dysarthria [None]
  - Diarrhoea [None]
  - Pain [None]
  - Gait inability [None]
  - Blister [None]
  - Faecal volume increased [None]

NARRATIVE: CASE EVENT DATE: 201801
